FAERS Safety Report 6980404-3 (Version None)
Quarter: 2010Q3

REPORT INFORMATION
  Report Type: 
  Country: None (occurrence: None)
  Receive Date: 20100908
  Receipt Date: 20100823
  Transmission Date: 20110219
  Serious: Yes (Hospitalization, Other)
  Sender: FDA-Public Use
  Company Number: 2010003613

PATIENT
  Age: 69 Year
  Sex: Male

DRUGS (6)
  1. ERLOTINIB HYDROCHLORIDE [Suspect]
     Indication: HEPATIC NEOPLASM MALIGNANT
     Dosage: 100 MG, QD, ORAL
     Route: 048
     Dates: start: 20100809
  2. SORAFENIB [Suspect]
     Indication: HEPATIC NEOPLASM MALIGNANT
     Dosage: 400 MG, QD, ORAL
     Route: 048
     Dates: start: 20100809
  3. FRUSEMIDE [Concomitant]
  4. SPIRONOLACTONE [Concomitant]
  5. HADOLOL (DOMPERIDONE) [Concomitant]
  6. FORTISIP [Concomitant]

REACTIONS (2)
  - DEHYDRATION [None]
  - HYPONATRAEMIA [None]
